FAERS Safety Report 10263677 (Version 3)
Quarter: 2014Q3

REPORT INFORMATION
  Report Type: Spontaneous
  Country: ZA (occurrence: ZA)
  Receive Date: 20140626
  Receipt Date: 20140804
  Transmission Date: 20150326
  Serious: Yes (Death, Other)
  Sender: FDA-Public Use
  Company Number: ZA-ROCHE-1425423

PATIENT
  Sex: Male

DRUGS (1)
  1. AVASTIN [Suspect]
     Active Substance: BEVACIZUMAB
     Indication: PRODUCT USED FOR UNKNOWN INDICATION
     Dosage: 400MG
     Route: 065
     Dates: start: 20140317, end: 20140425

REACTIONS (4)
  - Death [Fatal]
  - Disease progression [Unknown]
  - Intestinal obstruction [Unknown]
  - Metastases to peritoneum [Unknown]
